FAERS Safety Report 15708317 (Version 2)
Quarter: 2019Q1

REPORT INFORMATION
  Report Type: Spontaneous
  Country: US (occurrence: US)
  Receive Date: 20181211
  Receipt Date: 20190213
  Transmission Date: 20190417
  Serious: No
  Sender: FDA-Public Use
  Company Number: US-PFIZER INC-2018508723

PATIENT
  Age: 77 Year
  Sex: Female
  Weight: 67.12 kg

DRUGS (1)
  1. IBRANCE [Suspect]
     Active Substance: PALBOCICLIB
     Indication: BREAST CANCER METASTATIC
     Dosage: 125 MG, CYCLIC [D1-21 Q 28 DAYS]
     Route: 048
     Dates: start: 20181019

REACTIONS (3)
  - White blood cell count decreased [Unknown]
  - Cough [Unknown]
  - Sinus congestion [Unknown]
